FAERS Safety Report 14539031 (Version 1)
Quarter: 2018Q1

REPORT INFORMATION
  Report Type: Spontaneous
  Country: US (occurrence: US)
  Receive Date: 20180216
  Receipt Date: 20180216
  Transmission Date: 20180509
  Serious: Yes (Other)
  Sender: FDA-Public Use
  Company Number: US-BEH-2018087856

PATIENT
  Age: 75 Year
  Sex: Female

DRUGS (2)
  1. HAEGARDA [Suspect]
     Active Substance: HUMAN C1-ESTERASE INHIBITOR
     Indication: PROPHYLAXIS
  2. HAEGARDA [Suspect]
     Active Substance: HUMAN C1-ESTERASE INHIBITOR
     Indication: HEREDITARY ANGIOEDEMA
     Dosage: 2900 IU, BIW (EVERY 3-4 DAYS)
     Route: 058
     Dates: start: 20171219

REACTIONS (2)
  - Hereditary angioedema [Recovered/Resolved]
  - Hereditary angioedema [Unknown]

NARRATIVE: CASE EVENT DATE: 20180129
